FAERS Safety Report 6138814-2 (Version None)
Quarter: 2009Q1

REPORT INFORMATION
  Report Type: 
  Country: None (occurrence: None)
  Receive Date: 20090331
  Receipt Date: 20090326
  Transmission Date: 20090719
  Serious: No
  Sender: FDA-Public Use
  Company Number: US-B.I. PHARMACEUTICALS,INC./RIDGEFIELD-2009-BP-02713BP

PATIENT
  Age: 82 Year
  Sex: Male
  Weight: 88 kg

DRUGS (8)
  1. SPIRIVA [Suspect]
     Indication: CHRONIC OBSTRUCTIVE PULMONARY DISEASE
     Dosage: 18MCG
     Dates: start: 20050929, end: 20081218
  2. THEO-DUR [Concomitant]
     Dosage: 900MG
     Dates: start: 19950702
  3. SINGULAIR [Concomitant]
     Dosage: 10MG
     Dates: start: 20010214
  4. ALBUTEROL [Concomitant]
     Dates: start: 19970918
  5. COMBIVENT [Concomitant]
     Dates: start: 19970918
  6. DUONEB [Concomitant]
     Dates: start: 19950824
  7. PREDNISONE [Concomitant]
     Dosage: 10MG
     Route: 048
     Dates: start: 20080321
  8. OXYGEN [Concomitant]
     Indication: CHRONIC OBSTRUCTIVE PULMONARY DISEASE

REACTIONS (2)
  - CHEST DISCOMFORT [None]
  - CHEST PAIN [None]
